FAERS Safety Report 15242013 (Version 3)
Quarter: 2018Q4

REPORT INFORMATION
  Report Type: Report from Study
  Country: None (occurrence: US)
  Receive Date: 20180806
  Receipt Date: 20181104
  Transmission Date: 20190204
  Serious: Yes (Hospitalization)
  Sender: FDA-Public Use
  Company Number: US-ABBVIE-18K-163-2441747-00

PATIENT
  Age: 86 Year
  Sex: Female

DRUGS (1)
  1. VENCLEXTA [Suspect]
     Active Substance: VENETOCLAX
     Indication: MYELODYSPLASTIC SYNDROME
     Route: 048

REACTIONS (5)
  - Vulval abscess [Unknown]
  - Febrile neutropenia [Unknown]
  - Pneumonia bacterial [Unknown]
  - Drug interaction [Unknown]
  - Subcutaneous abscess [Unknown]

NARRATIVE: CASE EVENT DATE: 20181008
